FAERS Safety Report 25227992 (Version 6)
Quarter: 2025Q4

REPORT INFORMATION
  Report Type: Spontaneous
  Country: CA (occurrence: CA)
  Receive Date: 20250423
  Receipt Date: 20251023
  Transmission Date: 20260117
  Serious: Yes (Other)
  Sender: CELLTRION
  Company Number: CA-CELLTRION INC.-2025CA011847

PATIENT

DRUGS (7)
  1. INFLIXIMAB [Suspect]
     Active Substance: INFLIXIMAB
     Indication: Colitis ulcerative
     Dosage: 400 MG Q8WEEKS IV INDUCTION DOSE
     Route: 042
     Dates: start: 20250107
  2. INFLIXIMAB [Suspect]
     Active Substance: INFLIXIMAB
     Dosage: 400 MG Q8WEEKS IV INDUCTION DOSE
     Route: 042
     Dates: start: 20250415
  3. MESALAMINE [Concomitant]
     Active Substance: MESALAMINE
     Dosage: 4.8 GM ORAL ONCE DAILY
     Route: 048
  4. PANTOPRAZOLE SODIUM [Concomitant]
     Active Substance: PANTOPRAZOLE SODIUM
     Indication: Product used for unknown indication
     Dosage: 40 ML
     Route: 065
     Dates: start: 20241105
  5. PANTOPRAZOLE SODIUM [Concomitant]
     Active Substance: PANTOPRAZOLE SODIUM
     Dosage: 40.0 ML
  6. PREDNISONE [Concomitant]
     Active Substance: PREDNISONE
     Indication: Product used for unknown indication
     Dosage: 40 MG (TAPERING OFF AFTER 2 WEEKS BY 5 MG EVERY WEEK)
     Route: 065
     Dates: start: 20241105
  7. VITAMIN D3 [Concomitant]
     Active Substance: CHOLECALCIFEROL
     Indication: Product used for unknown indication
     Dosage: UNK
     Route: 065

REACTIONS (5)
  - Haematochezia [Unknown]
  - Off label use [Unknown]
  - Off label use [Unknown]
  - Overdose [Unknown]
  - Product dose omission in error [Unknown]

NARRATIVE: CASE EVENT DATE: 20250107
